FAERS Safety Report 5033188-2 (Version None)
Quarter: 2006Q2

REPORT INFORMATION
  Report Type: 
  Country: None (occurrence: None)
  Receive Date: 20060620
  Receipt Date: 20060605
  Transmission Date: 20061013
  Serious: Yes (Hospitalization)
  Sender: FDA-Public Use
  Company Number: 2006PV015027

PATIENT
  Age: 78 Year
  Sex: Male
  Weight: 70.3075 kg

DRUGS (5)
  1. BYETTA [Suspect]
     Indication: DIABETES MELLITUS NON-INSULIN-DEPENDENT
     Dosage: SEE IMAGE
     Route: 058
     Dates: start: 20060215, end: 20060316
  2. BYETTA [Suspect]
     Indication: DIABETES MELLITUS NON-INSULIN-DEPENDENT
     Dosage: SEE IMAGE
     Route: 058
     Dates: start: 20060317
  3. BETAPACE [Concomitant]
  4. AMIODARONE HCL [Concomitant]
  5. LASIX [Concomitant]

REACTIONS (1)
  - MALIGNANT PLEURAL EFFUSION [None]
